FAERS Safety Report 16819866 (Version 12)
Quarter: 2020Q1

REPORT INFORMATION
  Report Type: Report from Study
  Country: None (occurrence: US)
  Receive Date: 20190917
  Receipt Date: 20200130
  Transmission Date: 20200409
  Serious: Yes (Hospitalization, Other)
  Sender: FDA-Public Use
  Company Number: US-ABBVIE-19K-163-2856877-00

PATIENT
  Age: 60 Year
  Sex: Female
  Weight: 95.79 kg

DRUGS (27)
  1. HUMIRA [Suspect]
     Active Substance: ADALIMUMAB
     Route: 058
  2. SERTRALINE [Concomitant]
     Active Substance: SERTRALINE HYDROCHLORIDE
     Indication: MENTAL DISORDER
  3. FERROUS SULFATE. [Concomitant]
     Active Substance: FERROUS SULFATE
     Indication: ANAEMIA
  4. TRAZODONE [Concomitant]
     Active Substance: TRAZODONE HYDROCHLORIDE
     Indication: INSOMNIA
  5. HYDROCODIN [Concomitant]
     Active Substance: DIHYDROCODEINE BITARTRATE
     Indication: PAIN
  6. BENZONATATE. [Concomitant]
     Active Substance: BENZONATATE
     Indication: COUGH
  7. CETIRIZINE [Concomitant]
     Active Substance: CETIRIZINE HYDROCHLORIDE
     Indication: HYPERSENSITIVITY
  8. FAMOTIDINE. [Concomitant]
     Active Substance: FAMOTIDINE
     Indication: GASTROOESOPHAGEAL REFLUX DISEASE
  9. ZYRTEC [Concomitant]
     Active Substance: CETIRIZINE HYDROCHLORIDE
     Indication: HYPERSENSITIVITY
  10. HUMIRA [Suspect]
     Active Substance: ADALIMUMAB
     Indication: RHEUMATOID ARTHRITIS
     Route: 058
     Dates: start: 201302
  11. ATORVASTATIN [Concomitant]
     Active Substance: ATORVASTATIN
     Indication: BLOOD CHOLESTEROL INCREASED
  12. HUMIRA [Suspect]
     Active Substance: ADALIMUMAB
     Indication: RHEUMATOID ARTHRITIS
     Route: 058
  13. HUMIRA [Suspect]
     Active Substance: ADALIMUMAB
     Route: 058
     Dates: start: 2019
  14. OXYBUTYNIN CHLORIDE. [Concomitant]
     Active Substance: OXYBUTYNIN CHLORIDE
     Indication: URINARY INCONTINENCE
  15. ARIPIPRAZOLE. [Concomitant]
     Active Substance: ARIPIPRAZOLE
     Indication: MENTAL DISORDER
  16. PROMETHAZINE [Concomitant]
     Active Substance: PROMETHAZINE HYDROCHLORIDE
     Indication: NAUSEA
  17. VITAMIN D2 [Concomitant]
     Active Substance: ERGOCALCIFEROL
     Indication: VITAMIN D DEFICIENCY
  18. TRIAMCINOLONE [Concomitant]
     Active Substance: TRIAMCINOLONE
     Indication: PRODUCT USED FOR UNKNOWN INDICATION
  19. DERMOTIC OIL [Concomitant]
     Indication: EAR INFECTION
  20. ARIPIPRAZOLE. [Concomitant]
     Active Substance: ARIPIPRAZOLE
     Indication: MENTAL DISORDER
  21. TIZANIDINE. [Concomitant]
     Active Substance: TIZANIDINE
     Indication: MUSCLE RELAXANT THERAPY
  22. TRAMADOL. [Concomitant]
     Active Substance: TRAMADOL
     Indication: PAIN
  23. HUMIRA [Suspect]
     Active Substance: ADALIMUMAB
     Route: 058
  24. HUMIRA [Suspect]
     Active Substance: ADALIMUMAB
     Route: 058
     Dates: start: 2013, end: 20190820
  25. OLOPATADINE. [Concomitant]
     Active Substance: OLOPATADINE
     Indication: DRY EYE
  26. TIZANIDINE. [Concomitant]
     Active Substance: TIZANIDINE
     Indication: BACK PAIN
  27. LOSARTAN. [Concomitant]
     Active Substance: LOSARTAN
     Indication: HYPERTENSION

REACTIONS (70)
  - Joint range of motion decreased [Not Recovered/Not Resolved]
  - Musculoskeletal disorder [Not Recovered/Not Resolved]
  - Blood glucose decreased [Recovering/Resolving]
  - Hand fracture [Recovered/Resolved]
  - Pruritus allergic [Unknown]
  - Fall [Unknown]
  - Back pain [Unknown]
  - Rheumatoid arthritis [Unknown]
  - Migraine [Unknown]
  - Back pain [Not Recovered/Not Resolved]
  - Urticaria [Recovered/Resolved]
  - Pain [Unknown]
  - Ear pruritus [Unknown]
  - Intervertebral disc protrusion [Unknown]
  - Axillary pain [Not Recovered/Not Resolved]
  - Ligament sprain [Unknown]
  - Feeling hot [Unknown]
  - Dizziness [Unknown]
  - Procedural pain [Unknown]
  - Pain [Not Recovered/Not Resolved]
  - Blood pressure increased [Unknown]
  - Abdominal discomfort [Not Recovered/Not Resolved]
  - Ovarian cyst [Unknown]
  - Pollakiuria [Recovering/Resolving]
  - Pain in extremity [Recovering/Resolving]
  - Migraine [Recovered/Resolved]
  - Dyspepsia [Unknown]
  - Sinus headache [Not Recovered/Not Resolved]
  - Viral infection [Recovering/Resolving]
  - Nausea [Recovered/Resolved]
  - Folliculitis [Not Recovered/Not Resolved]
  - Loss of consciousness [Recovered/Resolved]
  - Wound complication [Unknown]
  - Injection site pain [Recovered/Resolved]
  - Bronchitis [Recovered/Resolved]
  - Impaired healing [Not Recovered/Not Resolved]
  - Musculoskeletal pain [Unknown]
  - Fall [Recovered/Resolved]
  - Fall [Recovered/Resolved]
  - Muscle spasms [Not Recovered/Not Resolved]
  - Limb discomfort [Unknown]
  - Fungal infection [Recovering/Resolving]
  - Allergic sinusitis [Unknown]
  - Hormone level abnormal [Not Recovered/Not Resolved]
  - Hernia [Unknown]
  - Feeling of body temperature change [Recovered/Resolved]
  - Fall [Recovered/Resolved]
  - Fungal infection [Recovering/Resolving]
  - Peripheral swelling [Recovering/Resolving]
  - Peripheral swelling [Not Recovered/Not Resolved]
  - Fall [Unknown]
  - Wound [Not Recovered/Not Resolved]
  - Fungal infection [Not Recovered/Not Resolved]
  - Bronchitis [Not Recovered/Not Resolved]
  - Rash [Not Recovered/Not Resolved]
  - Adhesion [Not Recovered/Not Resolved]
  - Rubber sensitivity [Unknown]
  - Limb injury [Recovered/Resolved]
  - Joint dislocation [Recovered/Resolved]
  - Skin abrasion [Unknown]
  - Wrist fracture [Recovered/Resolved]
  - Pain [Recovering/Resolving]
  - Sinusitis [Recovering/Resolving]
  - Back pain [Recovered/Resolved]
  - Headache [Recovered/Resolved]
  - Musculoskeletal stiffness [Unknown]
  - Rash pruritic [Not Recovered/Not Resolved]
  - Groin infection [Recovered/Resolved]
  - Diarrhoea [Recovered/Resolved]
  - Rash [Not Recovered/Not Resolved]

NARRATIVE: CASE EVENT DATE: 2013
